FAERS Safety Report 13027786 (Version 1)
Quarter: 2016Q4

REPORT INFORMATION
  Report Type: Spontaneous
  Country: US (occurrence: US)
  Receive Date: 20161214
  Receipt Date: 20161214
  Transmission Date: 20170207
  Serious: No
  Sender: FDA-Public Use
  Company Number: US-APOTEX-2016AP007120

PATIENT
  Sex: Female

DRUGS (1)
  1. FENTANYL TRANSDERMAL SYSTEM [Suspect]
     Active Substance: FENTANYL
     Indication: PRODUCT USED FOR UNKNOWN INDICATION
     Dosage: 1 PATCH IN 72 HOURS
     Route: 065

REACTIONS (6)
  - Burning sensation [Unknown]
  - Product adhesion issue [Not Recovered/Not Resolved]
  - Urticaria [Unknown]
  - Skin exfoliation [Unknown]
  - Skin irritation [Unknown]
  - Ill-defined disorder [Unknown]
